FAERS Safety Report 6234769-0 (Version None)
Quarter: 2009Q2

REPORT INFORMATION
  Report Type: 
  Country: None (occurrence: None)
  Receive Date: 20090618
  Receipt Date: 20090610
  Transmission Date: 20091009
  Serious: Yes (Disabling, Other)
  Sender: FDA-Public Use
  Company Number: PHEH2009US06066

PATIENT
  Age: 45 Year
  Sex: Female

DRUGS (1)
  1. RECLAST [Suspect]
     Indication: OSTEOPOROSIS
     Dosage: 5 MG, ONCE/SINGLE
     Dates: start: 20090426, end: 20090426

REACTIONS (3)
  - MULTIPLE SCLEROSIS [None]
  - SKIN ULCER [None]
  - URINARY TRACT INFECTION BACTERIAL [None]
